FAERS Safety Report 7512868-0 (Version None)
Quarter: 2011Q2

REPORT INFORMATION
  Report Type: 
  Country: None (occurrence: None)
  Receive Date: 20110520
  Receipt Date: 20110511
  Transmission Date: 20111010
  Serious: Yes (Death, Hospitalization)
  Sender: FDA-Public Use
  Company Number: JPI-P-014793

PATIENT
  Age: 80 Year
  Sex: Male

DRUGS (10)
  1. XYREM [Suspect]
     Indication: PRODUCT USED FOR UNKNOWN INDICATION
     Dosage: SEE IMAGE: ORAL
     Route: 048
     Dates: start: 20040901
  2. XYREM [Suspect]
     Indication: PRODUCT USED FOR UNKNOWN INDICATION
     Dosage: SEE IMAGE: ORAL
     Route: 048
     Dates: start: 20101027, end: 20101108
  3. XYREM [Suspect]
     Indication: PRODUCT USED FOR UNKNOWN INDICATION
     Dosage: SEE IMAGE: ORAL
     Route: 048
     Dates: start: 20040308, end: 20040101
  4. XYREM [Suspect]
     Indication: PRODUCT USED FOR UNKNOWN INDICATION
     Dosage: SEE IMAGE: ORAL
     Route: 048
     Dates: start: 20040127, end: 20040101
  5. XYREM [Suspect]
     Indication: PRODUCT USED FOR UNKNOWN INDICATION
     Dosage: SEE IMAGE: ORAL
     Route: 048
     Dates: start: 20100111, end: 20100101
  6. XYREM [Suspect]
     Indication: PRODUCT USED FOR UNKNOWN INDICATION
     Dosage: SEE IMAGE: ORAL
     Route: 048
     Dates: start: 20040514, end: 20040101
  7. XYREM [Suspect]
     Indication: PRODUCT USED FOR UNKNOWN INDICATION
     Dosage: SEE IMAGE: ORAL
     Route: 048
     Dates: start: 20091124
  8. XYREM [Suspect]
     Indication: PRODUCT USED FOR UNKNOWN INDICATION
     Dosage: SEE IMAGE: ORAL
     Route: 048
     Dates: start: 20040105, end: 20040101
  9. XYREM [Suspect]
     Indication: PRODUCT USED FOR UNKNOWN INDICATION
     Dosage: SEE IMAGE: ORAL
     Route: 048
     Dates: start: 20060803
  10. XYREM [Suspect]
     Indication: PRODUCT USED FOR UNKNOWN INDICATION
     Dosage: SEE IMAGE: ORAL
     Route: 048
     Dates: start: 20090402, end: 20090101

REACTIONS (3)
  - CARDIAC FAILURE CONGESTIVE [None]
  - DRUG DOSE OMISSION [None]
  - BACTERAEMIA [None]
